FAERS Safety Report 8363008-X (Version None)
Quarter: 2012Q2

REPORT INFORMATION
  Report Type: 
  Country: None (occurrence: None)
  Receive Date: 20120516
  Receipt Date: 20111010
  Transmission Date: 20120825
  Serious: No
  Sender: FDA-Public Use
  Company Number: US-ALEXION-A201101539

PATIENT
  Sex: Female

DRUGS (8)
  1. CELEXA [Concomitant]
     Dosage: 20 MG, QD
  2. SOLIRIS [Suspect]
     Indication: PAROXYSMAL NOCTURNAL HAEMOGLOBINURIA
     Dosage: 900 MG, Q2W
     Route: 042
     Dates: start: 20070605
  3. SYNTHROID [Concomitant]
     Dosage: 225 UG, QD
  4. VITAMIN B-12 [Concomitant]
     Dosage: UNK, QD
  5. CALCIUM WITH VITAMIN D [Concomitant]
     Dosage: UNK, QD
  6. MULTI-VITAMIN [Concomitant]
     Dosage: UNK, QD
  7. FOLIC ACID [Concomitant]
     Dosage: 4 MG, QD
  8. PROCRIT [Concomitant]
     Dosage: 40000 IU, QW

REACTIONS (1)
  - NEPHROLITHIASIS [None]
